FAERS Safety Report 8690826 (Version 3)
Quarter: 2013Q4

REPORT INFORMATION
  Report Type: Spontaneous
  Country: US (occurrence: US)
  Receive Date: 20120729
  Receipt Date: 20131025
  Transmission Date: 20140711
  Serious: Yes (Hospitalization, Other)
  Sender: FDA-Public Use
  Company Number: US-009507513-1207USA007383

PATIENT
  Sex: Female
  Weight: 66.21 kg

DRUGS (6)
  1. FOSAMAX [Suspect]
     Indication: OSTEOPOROSIS
     Dosage: 70 MG, QW
     Route: 048
     Dates: start: 20030728
  2. ALENDRONATE SODIUM [Suspect]
     Indication: OSTEOPOROSIS
     Dosage: 70 MG, UNK
     Dates: start: 20100611
  3. VITAMIN D (UNSPECIFIED) [Concomitant]
     Dosage: QD
     Dates: start: 1990
  4. OMEGA-3 MARINE TRIGLYCERIDES [Concomitant]
     Dosage: QD
     Dates: start: 1990
  5. CALCIUM (UNSPECIFIED) [Concomitant]
     Dosage: QD
     Dates: start: 1990
  6. CENTRUM SILVER [Concomitant]
     Dosage: QD
     Dates: start: 1990

REACTIONS (19)
  - Treatment failure [Unknown]
  - Local swelling [Unknown]
  - Arthralgia [Unknown]
  - Femur fracture [Unknown]
  - Intramedullary rod insertion [Unknown]
  - Anaemia postoperative [Unknown]
  - Removal of internal fixation [Unknown]
  - Meniscus injury [Unknown]
  - Vitamin D deficiency [Unknown]
  - Essential hypertension [Unknown]
  - Hypercholesterolaemia [Unknown]
  - Glaucoma [Unknown]
  - Osteoarthritis [Unknown]
  - Periarthritis [Unknown]
  - Malignant renal hypertension [Not Recovered/Not Resolved]
  - Upper respiratory tract infection [Unknown]
  - Fracture nonunion [Unknown]
  - Medical device complication [Unknown]
  - Carpal tunnel syndrome [Unknown]
